FAERS Safety Report 8388538-6 (Version None)
Quarter: 2012Q2

REPORT INFORMATION
  Report Type: 
  Country: None (occurrence: None)
  Receive Date: 20120525
  Receipt Date: 20120521
  Transmission Date: 20120825
  Serious: Yes (Life-Threatening, Hospitalization)
  Sender: FDA-Public Use
  Company Number: DE-ELI_LILLY_AND_COMPANY-DE201205005409

PATIENT
  Sex: Female

DRUGS (5)
  1. BETAPRESSIN [Concomitant]
  2. BYDUREON [Suspect]
     Indication: TYPE 2 DIABETES MELLITUS
     Dosage: UNK, WEEKLY (1/W)
     Route: 058
     Dates: start: 20111108, end: 20120409
  3. IRBESARTAN [Concomitant]
     Dosage: 300 MG, UNK
  4. PANTOPRAZOLE [Concomitant]
  5. METFORMIN HCL [Concomitant]
     Dosage: 500 MG, UNK

REACTIONS (2)
  - CARDIAC FAILURE [None]
  - VOMITING [None]
